FAERS Safety Report 25689945 (Version 1)
Quarter: 2025Q3

REPORT INFORMATION
  Report Type: Spontaneous
  Country: US (occurrence: US)
  Receive Date: 20250818
  Receipt Date: 20250818
  Transmission Date: 20251021
  Serious: No
  Sender: IPSEN BIOPHARMACEUTICALS, INC.
  Company Number: US-IPSEN Group, Research and Development-2025-19911

PATIENT
  Age: 62 Year
  Sex: Female

DRUGS (8)
  1. SOMATULINE DEPOT [Suspect]
     Active Substance: LANREOTIDE ACETATE
     Indication: Carcinoid tumour of the small bowel
     Dosage: 120MG/.5M EVERY 4 WEEKS
     Dates: start: 202507
  2. VITAMIN C [Concomitant]
     Active Substance: ASCORBIC ACID
  3. FOLIC ACID [Concomitant]
     Active Substance: FOLIC ACID
  4. HYDROCHLOROTHIAZIDE [Concomitant]
     Active Substance: HYDROCHLOROTHIAZIDE
  5. AMLODIPINE BESYLATE [Concomitant]
     Active Substance: AMLODIPINE BESYLATE
  6. B12 [Concomitant]
  7. VITAMINS [Concomitant]
     Active Substance: VITAMINS
  8. PROLIA [Concomitant]
     Active Substance: DENOSUMAB

REACTIONS (2)
  - Pain [Unknown]
  - Arthralgia [Unknown]
